FAERS Safety Report 4473770-4 (Version None)
Quarter: 2004Q3

REPORT INFORMATION
  Report Type: 
  Country: None (occurrence: None)
  Receive Date: 20040909
  Receipt Date: 20040510
  Transmission Date: 20050211
  Serious: No
  Sender: FDA-Public Use
  Company Number: A03200401512

PATIENT

DRUGS (2)
  1. ELOXATIN [Suspect]
     Dosage: INTRAVENOUS NOS
     Route: 042
  2. CAPECITABINE [Concomitant]

REACTIONS (3)
  - DERMATITIS EXFOLIATIVE [None]
  - PAIN [None]
  - SKIN DISCOLOURATION [None]
